FAERS Safety Report 7087011-5 (Version None)
Quarter: 2010Q4

REPORT INFORMATION
  Report Type: 
  Country: None (occurrence: None)
  Receive Date: 20101106
  Receipt Date: 20101004
  Transmission Date: 20110411
  Serious: No
  Sender: FDA-Public Use
  Company Number: US-WYE-H17957710

PATIENT
  Sex: Female

DRUGS (2)
  1. PREMARIN [Suspect]
     Indication: VULVOVAGINAL DRYNESS
     Dosage: NOT SPECIFIED
     Route: 067
     Dates: start: 20000101
  2. PREMARIN [Suspect]
     Indication: VULVOVAGINAL DISCOMFORT

REACTIONS (1)
  - DRUG INEFFECTIVE [None]
